FAERS Safety Report 7250187-0 (Version None)
Quarter: 2011Q1

REPORT INFORMATION
  Report Type: 
  Country: None (occurrence: None)
  Receive Date: 20110128
  Receipt Date: 20110112
  Transmission Date: 20110831
  Serious: Yes (Death, Other)
  Sender: FDA-Public Use
  Company Number: CO-BAYER-2011-000539

PATIENT
  Sex: Female

DRUGS (1)
  1. ULTRAVIST 370 [Suspect]
     Indication: CENTRAL VENOUS CATHETERISATION
     Dosage: UNK UNK, ONCE
     Dates: start: 20101227, end: 20101227

REACTIONS (5)
  - CHILLS [None]
  - ARRHYTHMIA [None]
  - RASH [None]
  - COUGH [None]
  - CARDIO-RESPIRATORY ARREST [None]
